FAERS Safety Report 6922288-5 (Version None)
Quarter: 2010Q3

REPORT INFORMATION
  Report Type: 
  Country: None (occurrence: None)
  Receive Date: 20100813
  Receipt Date: 20100803
  Transmission Date: 20110219
  Serious: Yes (Hospitalization)
  Sender: FDA-Public Use
  Company Number: US-BIOGENIDEC-2010BI026785

PATIENT
  Age: 52 Year
  Sex: Female

DRUGS (5)
  1. AVONEX [Suspect]
     Indication: MULTIPLE SCLEROSIS
     Route: 030
     Dates: start: 20100611, end: 20100618
  2. AVONEX [Suspect]
     Route: 030
     Dates: start: 20100619, end: 20100625
  3. AVONEX [Suspect]
     Route: 030
     Dates: start: 20100626, end: 20100702
  4. AVONEX [Suspect]
     Route: 030
     Dates: start: 20100703, end: 20100701
  5. CYTOXAN [Concomitant]
     Indication: MULTIPLE SCLEROSIS
     Dates: start: 20100601

REACTIONS (1)
  - PNEUMONIA [None]
